FAERS Safety Report 6931630-0 (Version None)
Quarter: 2010Q3

REPORT INFORMATION
  Report Type: 
  Country: None (occurrence: None)
  Receive Date: 20100813
  Receipt Date: 20100518
  Transmission Date: 20110219
  Serious: No
  Sender: FDA-Public Use
  Company Number: 1000013906

PATIENT
  Age: 35 Year
  Sex: Female

DRUGS (1)
  1. SAVELLA [Suspect]

REACTIONS (4)
  - DRY MOUTH [None]
  - FLUSHING [None]
  - HEADACHE [None]
  - HYPERAESTHESIA [None]
